FAERS Safety Report 5813741-6 (Version None)
Quarter: 2008Q3

REPORT INFORMATION
  Report Type: 
  Country: None (occurrence: None)
  Receive Date: 20080717
  Receipt Date: 20080708
  Transmission Date: 20090109
  Serious: Yes (Hospitalization, Other)
  Sender: FDA-Public Use
  Company Number: US-AVENTIS-200814136US

PATIENT
  Age: 61 Year
  Sex: Female

DRUGS (5)
  1. TAXOTERE [Suspect]
     Dosage: DOSE: 75MG/M2
  2. TAXOTERE [Suspect]
     Dosage: DOSE: 75MG/M2
     Dates: start: 20080623, end: 20080623
  3. CYCLOPHOSPHAMIDE [Suspect]
     Dosage: DOSE: UNK
  4. NEULASTA [Suspect]
     Dosage: DOSE: UNK
  5. UNKNOWN DRUG [Concomitant]

REACTIONS (9)
  - AMNESIA [None]
  - CHEST DISCOMFORT [None]
  - DYSPNOEA [None]
  - FALL [None]
  - FLUSHING [None]
  - HAEMATOMA [None]
  - HEAD INJURY [None]
  - HYPERSENSITIVITY [None]
  - LOSS OF CONSCIOUSNESS [None]
